FAERS Safety Report 6132433-X (Version None)
Quarter: 2009Q1

REPORT INFORMATION
  Report Type: 
  Country: None (occurrence: None)
  Receive Date: 20090325
  Receipt Date: 20090318
  Transmission Date: 20090719
  Serious: Yes (Hospitalization)
  Sender: FDA-Public Use
  Company Number: PHHO2007US05736

PATIENT
  Sex: Male

DRUGS (1)
  1. ERL 080A ERL+TAB [Suspect]
     Indication: RENAL TRANSPLANT
     Dosage: 360 MG DAILY
     Route: 048
     Dates: start: 20060411

REACTIONS (6)
  - HYPOPHAGIA [None]
  - MUCOCUTANEOUS ULCERATION [None]
  - OESOPHAGITIS [None]
  - ORAL PAIN [None]
  - TONGUE COATED [None]
  - WEIGHT DECREASED [None]
